FAERS Safety Report 11263698 (Version 1)
Quarter: 2015Q3

REPORT INFORMATION
  Report Type: Spontaneous
  Country: US (occurrence: US)
  Receive Date: 20150713
  Receipt Date: 20150713
  Transmission Date: 20151125
  Serious: No
  Sender: FDA-Public Use
  Company Number: US-BRISTOL-MYERS SQUIBB COMPANY-BMS-2015-044654

PATIENT
  Age: 78 Year
  Sex: Male

DRUGS (1)
  1. DASATINIB [Suspect]
     Active Substance: DASATINIB
     Indication: LUNG NEOPLASM MALIGNANT
     Dosage: 100 MG, QD
     Route: 048
     Dates: start: 20150616

REACTIONS (4)
  - Abdominal pain upper [Recovering/Resolving]
  - Constipation [Recovering/Resolving]
  - Headache [Recovering/Resolving]
  - Nausea [Not Recovered/Not Resolved]

NARRATIVE: CASE EVENT DATE: 20150623
